FAERS Safety Report 10410887 (Version 1)
Quarter: 2014Q3

REPORT INFORMATION
  Report Type: Spontaneous
  Country: US (occurrence: US)
  Receive Date: 20140826
  Receipt Date: 20140826
  Transmission Date: 20150326
  Serious: No
  Sender: FDA-Public Use
  Company Number: US-009507513-1408USA012001

PATIENT
  Age: 34 Year
  Sex: Female
  Weight: 77.98 kg

DRUGS (2)
  1. ALPRAM [Concomitant]
     Dosage: .5 2 TO 3 TIMES A DAY PRESCRIBED AS NEEDED
  2. NUVARING [Suspect]
     Active Substance: ETHINYL ESTRADIOL\ETONOGESTREL
     Indication: CONTRACEPTION
     Dosage: DOSE/FREQUENCY: 3 WEEKS IN 1 WEEK RING FREE BREAK
     Route: 067
     Dates: start: 200208

REACTIONS (1)
  - Metrorrhagia [Unknown]

NARRATIVE: CASE EVENT DATE: 20140818
